FAERS Safety Report 8806920 (Version 1)
Quarter: 2012Q4

REPORT INFORMATION
  Report Type: 
  Country: FR (occurrence: FR)
  Receive Date: 20120925
  Receipt Date: 20120925
  Transmission Date: 20130627
  Serious: Yes (Hospitalization)
  Sender: FDA-Public Use
  Company Number: FR-BRISTOL-MYERS SQUIBB COMPANY-16864977

PATIENT
  Age: 81 Year
  Sex: Male

DRUGS (7)
  1. APROVEL [Suspect]
     Dosage: Last dose: 31-May-2012
     Route: 048
     Dates: start: 20120531
  2. HUMALOG [Concomitant]
  3. KARDEGIC [Concomitant]
  4. DOLIPRANE [Concomitant]
  5. ZAMUDOL [Concomitant]
  6. SEROPLEX [Concomitant]
  7. BARACLUDE [Concomitant]
     Indication: HEPATIC NEOPLASM MALIGNANT
     Dates: start: 201111

REACTIONS (1)
  - Toxic skin eruption [Recovered/Resolved]
